FAERS Safety Report 8274477-8 (Version None)
Quarter: 2012Q2

REPORT INFORMATION
  Report Type: 
  Country: None (occurrence: None)
  Receive Date: 20120411
  Receipt Date: 20120327
  Transmission Date: 20120825
  Serious: Yes (Other)
  Sender: FDA-Public Use
  Company Number: US-ROCHE-1056402

PATIENT
  Sex: Male

DRUGS (8)
  1. RANIBIZUMAB [Suspect]
     Route: 050
     Dates: start: 20091019
  2. RANIBIZUMAB [Suspect]
     Dosage: BILATERALLY
     Route: 050
     Dates: start: 20100215
  3. RANIBIZUMAB [Suspect]
     Indication: AGE-RELATED MACULAR DEGENERATION
     Route: 050
     Dates: start: 20090915
  4. VISUDYNE [Concomitant]
  5. RANIBIZUMAB [Suspect]
     Route: 050
     Dates: start: 20091102
  6. GATIFLOXACIN [Concomitant]
     Dates: start: 20090901, end: 20100401
  7. RANIBIZUMAB [Suspect]
     Dosage: BILATERALLY
     Route: 050
     Dates: start: 20100412
  8. RANIBIZUMAB [Suspect]
     Dosage: BILATERALLY
     Route: 050
     Dates: start: 20100308

REACTIONS (2)
  - RETINAL HAEMORRHAGE [None]
  - INAPPROPRIATE SCHEDULE OF DRUG ADMINISTRATION [None]
